FAERS Safety Report 7168947-3 (Version None)
Quarter: 2010Q4

REPORT INFORMATION
  Report Type: 
  Country: None (occurrence: None)
  Receive Date: 20101216
  Receipt Date: 20100128
  Transmission Date: 20110411
  Serious: No
  Sender: FDA-Public Use
  Company Number: US-AMGEN-KDL387000

PATIENT

DRUGS (10)
  1. ENBREL [Suspect]
     Indication: RHEUMATOID ARTHRITIS
     Dosage: 50 MG, QWK
     Route: 058
     Dates: start: 20090525
  2. METHOTREXATE [Concomitant]
     Dosage: 25 MG, UNK
  3. HYDROXYCHLOROQUINE SULFATE [Concomitant]
     Dosage: UNK UNK, QD
  4. DICLOFENAC [Concomitant]
  5. PREDNISONE [Concomitant]
     Dosage: UNK UNK, PRN
  6. GLUCOSAMINE [Concomitant]
  7. CALCIUM [Concomitant]
  8. FOLIC ACID [Concomitant]
  9. SULTAMICILLIN [Concomitant]
  10. ALENDRONATE SODIUM [Concomitant]

REACTIONS (4)
  - FATIGUE [None]
  - INJECTION SITE IRRITATION [None]
  - NECK PAIN [None]
  - UPPER RESPIRATORY TRACT INFECTION [None]
